FAERS Safety Report 4559394-9 (Version None)
Quarter: 2005Q1

REPORT INFORMATION
  Report Type: 
  Country: None (occurrence: None)
  Receive Date: 20050120
  Receipt Date: 20050120
  Transmission Date: 20050727
  Serious: No
  Sender: FDA-Public Use
  Company Number: None

PATIENT
  Age: 56 Year
  Sex: Male

DRUGS (3)
  1. ASPIRIN [Suspect]
     Indication: PAIN
     Dosage: (PAIN) 650 MG TID [MONTHS]
  2. DILTIAZEM [Concomitant]
  3. KCL TAB [Concomitant]

REACTIONS (4)
  - ASTHENIA [None]
  - BLOOD PRESSURE DECREASED [None]
  - HEART RATE INCREASED [None]
  - MELAENA [None]
